FAERS Safety Report 18376537 (Version 1)
Quarter: 2020Q4

REPORT INFORMATION
  Report Type: Report from Study
  Country: US (occurrence: US)
  Receive Date: 20201013
  Receipt Date: 20201013
  Transmission Date: 20210114
  Serious: Yes (Hospitalization)
  Sender: FDA-Public Use
  Company Number: US-EISAI MEDICAL RESEARCH-EC-2020-080810

PATIENT
  Age: 81 Year
  Sex: Female

DRUGS (2)
  1. KEYTRUDA [Concomitant]
     Active Substance: PEMBROLIZUMAB
     Indication: ENDOMETRIAL CANCER
     Dosage: DOSE UNKNOWN
     Route: 041
     Dates: start: 20200910
  2. LENVIMA [Suspect]
     Active Substance: LENVATINIB
     Indication: ENDOMETRIAL CANCER
     Route: 048
     Dates: start: 20200916, end: 20200926

REACTIONS (8)
  - Vomiting [Unknown]
  - Retching [Unknown]
  - Ageusia [Unknown]
  - Constipation [Unknown]
  - Dysphonia [Unknown]
  - Nausea [Unknown]
  - Hallucination [Unknown]
  - Decreased appetite [Unknown]

NARRATIVE: CASE EVENT DATE: 202009
